FAERS Safety Report 6840787-1 (Version None)
Quarter: 2010Q3

REPORT INFORMATION
  Report Type: 
  Country: None (occurrence: None)
  Receive Date: 20100714
  Receipt Date: 20060809
  Transmission Date: 20110219
  Serious: No
  Sender: FDA-Public Use
  Company Number: US-PFIZER INC-2006099070

PATIENT
  Sex: Female
  Weight: 57.15 kg

DRUGS (6)
  1. CHANTIX [Suspect]
     Indication: SMOKING CESSATION THERAPY
     Dosage: FREQUENCY:  DAILY  INTERVAL:  EVERY DAY
     Route: 048
     Dates: start: 20060731
  2. HYDROCODONE [Concomitant]
     Route: 048
  3. CELEBREX [Concomitant]
     Route: 048
  4. MS CONTIN [Concomitant]
     Route: 048
  5. ALL OTHER THERAPEUTIC PRODUCTS [Concomitant]
     Route: 048
  6. DIURETICS [Concomitant]
     Route: 048

REACTIONS (2)
  - NICOTINE DEPENDENCE [None]
  - TOBACCO USER [None]
